FAERS Safety Report 17979668 (Version 2)
Quarter: 2020Q3

REPORT INFORMATION
  Report Type: Report from Study
  Country: GB (occurrence: GB)
  Receive Date: 20200703
  Receipt Date: 20200814
  Transmission Date: 20201103
  Serious: Yes (Other)
  Sender: FDA-Public Use
  Company Number: GB-JNJFOC-20200636186

PATIENT

DRUGS (5)
  1. CO?DYDRAMOL [Suspect]
     Active Substance: ACETAMINOPHEN\DIHYDROCODEINE
     Indication: MUSCULOSKELETAL DISORDER
  2. MORPHINE SULPHATE [Suspect]
     Active Substance: MORPHINE SULFATE
     Indication: MUSCULOSKELETAL DISORDER
     Route: 065
  3. CODEINE [Suspect]
     Active Substance: CODEINE
     Indication: MUSCULOSKELETAL DISORDER
     Route: 065
  4. TRAMADOL. [Suspect]
     Active Substance: TRAMADOL
     Indication: MUSCULOSKELETAL DISORDER
  5. DUROGESIC [Suspect]
     Active Substance: FENTANYL
     Indication: MUSCULOSKELETAL DISORDER
     Route: 062

REACTIONS (12)
  - Sensation of foreign body [Unknown]
  - Oesophageal achalasia [Unknown]
  - Inborn error of metabolism [Unknown]
  - Ileus paralytic [Unknown]
  - Dysphagia [Unknown]
  - Oesophageal spasm [Unknown]
  - Oesophageal motility disorder [Unknown]
  - Gastrointestinal obstruction [Unknown]
  - Chest pain [Unknown]
  - Cough [Unknown]
  - Off label use [Unknown]
  - Product use in unapproved indication [Unknown]
